FAERS Safety Report 25656497 (Version 1)
Quarter: 2025Q3

REPORT INFORMATION
  Report Type: Spontaneous
  Country: CN (occurrence: CN)
  Receive Date: 20250807
  Receipt Date: 20250807
  Transmission Date: 20251021
  Serious: Yes (Other)
  Sender: ELI LILLY AND COMPANY
  Company Number: CN-ELI_LILLY_AND_COMPANY-CN202507029508

PATIENT
  Age: 60 Year
  Sex: Male
  Weight: 75 kg

DRUGS (3)
  1. HUMULIN R [Suspect]
     Active Substance: INSULIN HUMAN
     Indication: Diabetes mellitus
     Dosage: 15-17 U, EACH MORNING
     Route: 058
     Dates: start: 2012, end: 20250727
  2. HUMULIN R [Suspect]
     Active Substance: INSULIN HUMAN
     Route: 058
     Dates: start: 2012, end: 20250727
  3. HUMULIN R [Suspect]
     Active Substance: INSULIN HUMAN
     Dosage: 20 U, EACH EVENING
     Route: 058
     Dates: start: 2012, end: 20250727

REACTIONS (2)
  - Cerebral infarction [Unknown]
  - Endocrine pancreatic disorder [Unknown]

NARRATIVE: CASE EVENT DATE: 20150101
